FAERS Safety Report 26085114 (Version 1)
Quarter: 2025Q4

REPORT INFORMATION
  Report Type: Spontaneous
  Country: EU (occurrence: EU)
  Receive Date: 20251125
  Receipt Date: 20251125
  Transmission Date: 20260118
  Serious: Yes (Other)
  Sender: HIKMA
  Company Number: None

PATIENT
  Age: 63 Year
  Sex: Female

DRUGS (2)
  1. EPIRUBICIN [Suspect]
     Active Substance: EPIRUBICIN
     Indication: Breast cancer
     Dosage: 752 MILLIGRAM
     Route: 042
     Dates: start: 20250326, end: 20250528
  2. HERCEPTIN [Suspect]
     Active Substance: TRASTUZUMAB
     Indication: Breast cancer
     Dosage: 752 MILLIGRAM
     Route: 042
     Dates: start: 20250326, end: 202509

REACTIONS (2)
  - Ventricular dysfunction [Not Recovered/Not Resolved]
  - Heart failure with reduced ejection fraction [Not Recovered/Not Resolved]

NARRATIVE: CASE EVENT DATE: 20250910
